FAERS Safety Report 14607518 (Version 2)
Quarter: 2018Q2

REPORT INFORMATION
  Report Type: Report from Study
  Country: None (occurrence: TW)
  Receive Date: 20180307
  Receipt Date: 20180402
  Transmission Date: 20180711
  Serious: Yes (Hospitalization)
  Sender: FDA-Public Use
  Company Number: TW-ABBVIE-18K-153-2275973-00

PATIENT
  Age: 41 Year
  Sex: Male
  Weight: 102 kg

DRUGS (1)
  1. HUMIRA [Suspect]
     Active Substance: ADALIMUMAB
     Indication: PSORIATIC ARTHROPATHY
     Route: 058
     Dates: start: 20180130, end: 20180214

REACTIONS (27)
  - Dyspnoea [Recovered/Resolved]
  - Sinus tachycardia [Unknown]
  - Cardiac autonomic neuropathy [Unknown]
  - Aortic disorder [Unknown]
  - Peripheral venous disease [Unknown]
  - Pallor [Unknown]
  - Nasopharyngitis [Recovered/Resolved]
  - Left ventricular dysfunction [Unknown]
  - Pulmonary mass [Unknown]
  - Pericardial effusion [Unknown]
  - Asthenia [Unknown]
  - Fatigue [Unknown]
  - Bronchial wall thickening [Unknown]
  - Cardiac failure congestive [Unknown]
  - Pneumonitis [Unknown]
  - Pulmonary vascular disorder [Unknown]
  - C-reactive protein increased [Recovered/Resolved]
  - Pleural effusion [Recovered/Resolved]
  - Cardiac valve disease [Unknown]
  - Myocardial fibrosis [Unknown]
  - Dyspnoea [Unknown]
  - Palpitations [Not Recovered/Not Resolved]
  - Left ventricular hypertrophy [Unknown]
  - Dizziness [Unknown]
  - Dyspepsia [Unknown]
  - Pneumonia [Unknown]
  - Aortic arteriosclerosis [Unknown]

NARRATIVE: CASE EVENT DATE: 2018
